FAERS Safety Report 8571430-1 (Version None)
Quarter: 2012Q3

REPORT INFORMATION
  Report Type: 
  Country: None (occurrence: None)
  Receive Date: 20120806
  Receipt Date: 20120726
  Transmission Date: 20120928
  Serious: Yes (Other)
  Sender: FDA-Public Use
  Company Number: CA-JNJFOC-20120713667

PATIENT
  Sex: Female
  Weight: 62 kg

DRUGS (2)
  1. REMICADE [Suspect]
     Indication: RHEUMATOID ARTHRITIS
     Route: 042
     Dates: start: 20061020
  2. METHOTREXATE [Concomitant]
     Dosage: 6 TABLETS
     Route: 048

REACTIONS (2)
  - EPISTAXIS [None]
  - HAEMOGLOBIN DECREASED [None]
